FAERS Safety Report 8770775 (Version 1)
Quarter: 2012Q4

REPORT INFORMATION
  Report Type: 
  Country: US (occurrence: US)
  Receive Date: 20120906
  Receipt Date: 20120906
  Transmission Date: 20130627
  Serious: Yes (Other)
  Sender: FDA-Public Use
  Company Number: US-COVIDIEN/TYCO HEALTHCARE/MALLINCKRODT-T201203325

PATIENT
  Age: 35 Year
  Sex: Female

DRUGS (3)
  1. EXALGO EXTENDED RELEASE [Suspect]
     Indication: MIGRAINE
     Dosage: Took one tab
     Dates: start: 20120723, end: 20120723
  2. LEVOTHYROXINE [Concomitant]
     Dosage: 75 mcg, UNK
  3. VICOPROFEN [Concomitant]
     Indication: DYSMENORRHOEA

REACTIONS (3)
  - Intentional drug misuse [Unknown]
  - Drug diversion [Unknown]
  - Nausea [Unknown]
